FAERS Safety Report 17600676 (Version 1)
Quarter: 2020Q1

REPORT INFORMATION
  Report Type: Spontaneous
  Country: US (occurrence: US)
  Receive Date: 20200330
  Receipt Date: 20200330
  Transmission Date: 20200409
  Serious: Yes (Other)
  Sender: FDA-Public Use
  Company Number: US-IMPRIMIS NJOF-2082120

PATIENT

DRUGS (1)
  1. MOXIFLOXACIN 5 MG/ML [Suspect]
     Active Substance: MOXIFLOXACIN

REACTIONS (1)
  - Corneal oedema [Unknown]
